FAERS Safety Report 12471641 (Version 1)
Quarter: 2016Q2

REPORT INFORMATION
  Report Type: Spontaneous
  Country: US (occurrence: None)
  Receive Date: 20160615
  Receipt Date: 20160615
  Transmission Date: 20160815
  Serious: Yes (Hospitalization)
  Sender: FDA-Public Use
  Company Number: None

PATIENT
  Age: 62 Year
  Sex: Female
  Weight: 98.9 kg

DRUGS (12)
  1. TUSSIONEX PENNKINETIC [Suspect]
     Active Substance: CHLORPHENIRAMINE\HYDROCODONE
     Dosage: 5ML NIGTLY PO
     Route: 048
  2. LIPITOR [Concomitant]
     Active Substance: ATORVASTATIN CALCIUM
  3. DRISDOL [Concomitant]
     Active Substance: ERGOCALCIFEROL
  4. FE [Concomitant]
     Active Substance: IRON
  5. ZYLOPRIM [Concomitant]
     Active Substance: ALLOPURINOL
  6. ORAMORPH SR SUSTAINED RELEASE [Suspect]
     Active Substance: MORPHINE SULFATE
     Indication: PAIN
     Dosage: 30MG 12HR TABLET TID
  7. CATAPRES [Concomitant]
     Active Substance: CLONIDINE HYDROCHLORIDE
  8. ZYRTEC [Concomitant]
     Active Substance: CETIRIZINE HYDROCHLORIDE
  9. NEURONT [Concomitant]
  10. PROVENTIL [Concomitant]
     Active Substance: ALBUTEROL
  11. NORVASC [Concomitant]
     Active Substance: AMLODIPINE BESYLATE
  12. NEXIUM [Concomitant]
     Active Substance: ESOMEPRAZOLE MAGNESIUM

REACTIONS (2)
  - Respiratory failure [None]
  - Encephalopathy [None]

NARRATIVE: CASE EVENT DATE: 20150927
